FAERS Safety Report 6929773-0 (Version None)
Quarter: 2010Q3

REPORT INFORMATION
  Report Type: 
  Country: None (occurrence: None)
  Receive Date: 20100818
  Receipt Date: 20100803
  Transmission Date: 20110219
  Serious: Yes (Hospitalization, Other)
  Sender: FDA-Public Use
  Company Number: PHHY2010JP42359

PATIENT
  Age: 69 Year
  Sex: Female

DRUGS (2)
  1. GLEEVEC [Suspect]
     Indication: CHRONIC MYELOID LEUKAEMIA
     Dosage: 400 MG, UNK
     Route: 048
  2. ALL TRANS RETINOIC ACID [Concomitant]
     Dosage: 45 MG/M2

REACTIONS (13)
  - ACUTE PROMYELOCYTIC LEUKAEMIA [None]
  - CHROMOSOME ANALYSIS ABNORMAL [None]
  - CHRONIC MYELOID LEUKAEMIA TRANSFORMATION [None]
  - DEBRIDEMENT [None]
  - DISSEMINATED INTRAVASCULAR COAGULATION [None]
  - LEUKAEMIA RECURRENT [None]
  - LEUKOCYTOSIS [None]
  - LEUKOPENIA [None]
  - MARROW HYPERPLASIA [None]
  - OSTEOMYELITIS [None]
  - PERICARDIAL EFFUSION [None]
  - PLEURAL EFFUSION [None]
  - RETINOIC ACID SYNDROME [None]
